FAERS Safety Report 7637177-0 (Version None)
Quarter: 2011Q3

REPORT INFORMATION
  Report Type: 
  Country: None (occurrence: None)
  Receive Date: 20110726
  Receipt Date: 20110712
  Transmission Date: 20111222
  Serious: Yes (Hospitalization)
  Sender: FDA-Public Use
  Company Number: PHHY2011KR63119

PATIENT

DRUGS (6)
  1. CLONAZEPAM [Concomitant]
     Dosage: UNK UKN, UNK
  2. TEGRETOL-XR [Suspect]
     Dosage: UNK UKN, UNK
     Route: 048
  3. PHENYTOIN [Concomitant]
     Dosage: UNK UKN, UNK
  4. FILGRASTIM [Concomitant]
     Dosage: UNK MMOL, UNK
  5. TEGRETOL [Suspect]
     Dosage: UNK UKN, UNK
     Route: 048
  6. KEPPRA [Concomitant]
     Dosage: UNK UKN, UNK

REACTIONS (6)
  - MYALGIA [None]
  - CONVULSION [None]
  - ENCEPHALITIS [None]
  - AGRANULOCYTOSIS [None]
  - PYREXIA [None]
  - MENTAL DISORDER [None]
